FAERS Safety Report 19771418 (Version 2)
Quarter: 2021Q3

REPORT INFORMATION
  Report Type: Report from Study
  Country: JP (occurrence: JP)
  Receive Date: 20210831
  Receipt Date: 20210831
  Transmission Date: 20211014
  Serious: Yes (Hospitalization)
  Sender: FDA-Public Use
  Company Number: JP-JNJFOC-A-CH2017-157897

PATIENT
  Age: 71 Year
  Sex: Female
  Weight: 35.6 kg

DRUGS (29)
  1. UPTRAVI [Suspect]
     Active Substance: SELEXIPAG
     Dosage: 0.4 MCG, BID
     Route: 048
     Dates: start: 20170428, end: 20170509
  2. SAMSCA [Concomitant]
     Active Substance: TOLVAPTAN
     Indication: RIGHT VENTRICULAR FAILURE
     Dosage: 7.5 MG, QD
  3. CARVEDILOL. [Concomitant]
     Active Substance: CARVEDILOL
     Indication: RIGHT VENTRICULAR FAILURE
     Dosage: 5 MG, QD
     Dates: start: 20170523, end: 20170809
  4. BAYASPIRIN [Concomitant]
     Active Substance: ASPIRIN
     Indication: MYOCARDIAL ISCHAEMIA
     Dosage: 100 MG, QD
  5. LUPRAC [Concomitant]
     Active Substance: TORSEMIDE
     Indication: RIGHT VENTRICULAR FAILURE
     Dosage: 2 MG, QD
     Dates: start: 20170704, end: 20170801
  6. ATORVASTATIN CALCIUM TRIHYDRATE [Concomitant]
     Active Substance: ATORVASTATIN CALCIUM
     Indication: PROPHYLAXIS
  7. OPSUMIT [Suspect]
     Active Substance: MACITENTAN
     Dosage: 10 MG, QD
     Route: 048
     Dates: start: 20150831, end: 20150928
  8. UPTRAVI [Suspect]
     Active Substance: SELEXIPAG
     Indication: PULMONARY ARTERIAL HYPERTENSION
     Dosage: 0.2 MCG, BID
     Route: 048
     Dates: start: 20170418, end: 20170424
  9. CARELOAD [Concomitant]
     Active Substance: BERAPROST SODIUM
     Indication: PULMONARY ARTERIAL HYPERTENSION
  10. ZOLPIDEM [Concomitant]
     Active Substance: ZOLPIDEM TARTRATE
     Dosage: 5 MG, QD
     Route: 048
     Dates: start: 20190108
  11. PARIET [Concomitant]
     Active Substance: RABEPRAZOLE SODIUM
     Indication: GASTRITIS PROPHYLAXIS
     Dosage: 10 MG, QD
     Dates: end: 20171024
  12. TAKECAB [Concomitant]
     Active Substance: VONOPRAZAN FUMARATE
     Indication: PROPHYLAXIS AGAINST GASTROINTESTINAL ULCER
     Dosage: 20 MG, QD
     Dates: start: 20180802
  13. OPSUMIT [Suspect]
     Active Substance: MACITENTAN
     Indication: PULMONARY ARTERIAL HYPERTENSION
     Dosage: 5 MG, QD
     Route: 048
     Dates: start: 20150929, end: 20151203
  14. TRICHLORMETHIAZIDE [Concomitant]
     Active Substance: TRICHLORMETHIAZIDE
     Indication: RIGHT VENTRICULAR FAILURE
  15. FERROUS SULFATE. [Concomitant]
     Active Substance: FERROUS SULFATE
     Indication: IRON DEFICIENCY ANAEMIA
     Dosage: 420 MG, QD
     Dates: end: 20170809
  16. UPTRAVI [Suspect]
     Active Substance: SELEXIPAG
     Dosage: 0.6 MCG, BID
     Route: 048
     Dates: start: 20170510, end: 20170522
  17. ADCIRCA [Concomitant]
     Active Substance: TADALAFIL
     Indication: PULMONARY ARTERIAL HYPERTENSION
     Dosage: 40 MG, QD
     Route: 048
  18. OXYGEN. [Concomitant]
     Active Substance: OXYGEN
     Route: 055
  19. UPTRAVI [Suspect]
     Active Substance: SELEXIPAG
     Dosage: 0.8 MCG, BID
     Route: 048
     Dates: start: 20170523
  20. ALDACTONE A [Concomitant]
     Active Substance: SPIRONOLACTONE
     Indication: RIGHT VENTRICULAR FAILURE
     Dosage: 50 MG, QD
  21. AMIODARONE [Concomitant]
     Active Substance: AMIODARONE
     Dosage: 400 MG, QD
     Dates: start: 20170714, end: 20170809
  22. BELSOMRA [Concomitant]
     Active Substance: SUVOREXANT
     Indication: INSOMNIA
     Dosage: 15 MG, QD
     Dates: start: 20180925, end: 20181211
  23. OPSUMIT [Suspect]
     Active Substance: MACITENTAN
     Dosage: 10 MG, QD
     Route: 048
     Dates: start: 20151218
  24. ELIQUIS [Concomitant]
     Active Substance: APIXABAN
     Indication: ATRIAL TACHYCARDIA
     Dosage: 5 MG, QD
  25. ZOLPIDEM [Concomitant]
     Active Substance: ZOLPIDEM TARTRATE
     Indication: INSOMNIA
     Dosage: 2.5 MG, QD
     Route: 048
     Dates: end: 20190108
  26. ATORVASTATIN CALCIUM TRIHYDRATE [Concomitant]
     Active Substance: ATORVASTATIN CALCIUM
     Indication: DYSLIPIDAEMIA
     Dosage: 10 MG, QD
  27. FUROSEMIDE. [Concomitant]
     Active Substance: FUROSEMIDE
     Indication: RIGHT VENTRICULAR FAILURE
     Dosage: 40 MG, QD
     Route: 048
     Dates: start: 20170804, end: 20190305
  28. ARTIST [Concomitant]
     Active Substance: CARVEDILOL
     Indication: ATRIAL TACHYCARDIA
     Dosage: 20 MG, QD
     Dates: end: 20170523
  29. FUROSEMIDE. [Concomitant]
     Active Substance: FUROSEMIDE
     Dosage: 20  MG, QD
     Route: 048
     Dates: start: 20190305

REACTIONS (9)
  - Cardiac failure [Recovered/Resolved]
  - Cardiac ablation [Unknown]
  - Abdominal distension [Recovered/Resolved]
  - Malaise [Recovered/Resolved]
  - Platelet count decreased [Recovering/Resolving]
  - Dyspnoea exertional [Recovered/Resolved]
  - Blood pressure decreased [Recovered/Resolved]
  - Anaemia [Recovering/Resolving]
  - Atrial tachycardia [Recovered/Resolved]

NARRATIVE: CASE EVENT DATE: 20150928
